FAERS Safety Report 7301271-4 (Version None)
Quarter: 2011Q1

REPORT INFORMATION
  Report Type: 
  Country: None (occurrence: None)
  Receive Date: 20110112
  Receipt Date: 20090827
  Transmission Date: 20110831
  Serious: Yes (Other)
  Sender: FDA-Public Use
  Company Number: THYM-1001171

PATIENT
  Age: 34 Year
  Sex: Male
  Weight: 93.8 kg

DRUGS (4)
  1. TACROLIMUS [Suspect]
     Indication: PRODUCT USED FOR UNKNOWN INDICATION
  2. UNSPECIFIED STEROID (UNSPECIFIED STEROID) [Concomitant]
  3. ALEFACEPT (ALEFACEPT) [Suspect]
     Indication: RENAL TRANSPLANT
  4. THYMOGLOBULIN [Suspect]
     Indication: PROPHYLAXIS AGAINST TRANSPLANT REJECTION
     Dosage: 125 MG, INTRAVENOUS
     Route: 042

REACTIONS (2)
  - DYSPNOEA [None]
  - CHILLS [None]
